FAERS Safety Report 7365825-1 (Version None)
Quarter: 2011Q1

REPORT INFORMATION
  Report Type: 
  Country: None (occurrence: None)
  Receive Date: 20110316
  Receipt Date: 20110316
  Transmission Date: 20110831
  Serious: Yes (Other)
  Sender: FDA-Public Use
  Company Number: None

PATIENT
  Sex: Male
  Weight: 77.1 kg

DRUGS (1)
  1. ENOXAPARIN [Suspect]
     Dosage: 80MG Q12HR SQ

REACTIONS (14)
  - INTRA-ABDOMINAL HAEMORRHAGE [None]
  - ANURIA [None]
  - HAEMATOCRIT DECREASED [None]
  - TOXICITY TO VARIOUS AGENTS [None]
  - SEPSIS [None]
  - HYPOTENSION [None]
  - FAECES DISCOLOURED [None]
  - ABDOMINAL RIGIDITY [None]
  - OCCULT BLOOD POSITIVE [None]
  - ABDOMINAL DISTENSION [None]
  - INCORRECT DOSE ADMINISTERED [None]
  - MUSCLE HAEMORRHAGE [None]
  - DRUG EFFECT INCREASED [None]
  - RENAL FAILURE ACUTE [None]
